FAERS Safety Report 20203062 (Version 1)
Quarter: 2021Q4

REPORT INFORMATION
  Report Type: Spontaneous
  Country: US (occurrence: US)
  Receive Date: 20211218
  Receipt Date: 20211218
  Transmission Date: 20220304
  Serious: No
  Sender: FDA-Public Use
  Company Number: US-009507513-2112USA003272

PATIENT
  Age: 78 Year
  Sex: Female

DRUGS (1)
  1. KEYTRUDA [Suspect]
     Active Substance: PEMBROLIZUMAB
     Indication: Microsatellite instability cancer
     Dosage: 200 MILLIGRAM, EVERY 21 DAYS
     Route: 042
     Dates: start: 20180416

REACTIONS (11)
  - Balance disorder [Unknown]
  - Confusional state [Unknown]
  - Impaired healing [Unknown]
  - Gastric mucosal lesion [Unknown]
  - Vision blurred [Unknown]
  - Skin lesion [Unknown]
  - Asthenia [Unknown]
  - Rash pruritic [Unknown]
  - Fatigue [Unknown]
  - Product prescribing issue [Unknown]
  - Circumstance or information capable of leading to medication error [Unknown]
